FAERS Safety Report 16962194 (Version 1)
Quarter: 2019Q4

REPORT INFORMATION
  Report Type: Spontaneous
  Country: US (occurrence: US)
  Receive Date: 20190907
  Receipt Date: 20190907
  Transmission Date: 20200122
  Serious: No
  Sender: FDA-Public Use
  Company Number: None

PATIENT
  Age: 73 Year
  Sex: Female

DRUGS (1)
  1. HUMIRA [Suspect]
     Active Substance: ADALIMUMAB
     Indication: PSORIATIC ARTHROPATHY
     Route: 058
     Dates: start: 20190812

REACTIONS (4)
  - Erythema [None]
  - Dyspnoea [None]
  - Peripheral swelling [None]
  - Pharyngeal swelling [None]

NARRATIVE: CASE EVENT DATE: 20190831
